FAERS Safety Report 21725542 (Version 2)
Quarter: 2022Q4

REPORT INFORMATION
  Report Type: Spontaneous
  Country: US (occurrence: US)
  Receive Date: 20221214
  Receipt Date: 20221216
  Transmission Date: 20230113
  Serious: Yes (Other)
  Sender: FDA-Public Use
  Company Number: US-BRISTOL-MYERS SQUIBB COMPANY-2022-151507

PATIENT
  Age: 82 Year
  Sex: Female

DRUGS (1)
  1. REVLIMID [Suspect]
     Active Substance: LENALIDOMIDE
     Indication: Plasma cell myeloma
     Dosage: TAKE 1CAPSULE BY MOUTH EVERY OTHER DAY FOR 22 DAYS DAYS 1 THROUGH 21 OUT OF 28 DAY
     Route: 048
     Dates: start: 202201

REACTIONS (2)
  - Internal haemorrhage [Unknown]
  - Off label use [Unknown]
